FAERS Safety Report 8842774 (Version 4)
Quarter: 2013Q1

REPORT INFORMATION
  Report Type: Spontaneous
  Country: IE (occurrence: IE)
  Receive Date: 20121016
  Receipt Date: 20130212
  Transmission Date: 20140127
  Serious: Yes (Death)
  Sender: FDA-Public Use
  Company Number: IE-ELI_LILLY_AND_COMPANY-IE201210000546

PATIENT
  Age: 47 Year
  Sex: Female
  Weight: 121 kg

DRUGS (9)
  1. CYMBALTA [Suspect]
     Indication: DEPRESSION
     Dosage: 60 MG, QD
     Route: 048
     Dates: start: 20110218
  2. INDERAL [Concomitant]
     Dosage: 80 MG, UNK
  3. VALIUM [Concomitant]
  4. TEMAZEPAM [Concomitant]
     Dosage: 10 MG, UNK
  5. DIAZEPAM [Concomitant]
     Dosage: 5 MG, BID
  6. AMLODIPINE [Concomitant]
     Dosage: 10 MG, UNK
  7. PERINDOPRIL [Concomitant]
     Dosage: 10 MG, UNK
  8. OMEPRAZOLE [Concomitant]
     Dosage: 20 MG, UNK
     Dates: start: 20110218
  9. ELTROXIN                                /SCH/ [Concomitant]
     Dosage: 100 UG, UNKNOWN

REACTIONS (3)
  - Arrhythmia [Fatal]
  - Overweight [Unknown]
  - Drug level above therapeutic [Unknown]
